FAERS Safety Report 8801383 (Version 1)
Quarter: 2012Q4

REPORT INFORMATION
  Report Type: 
  Country: JP (occurrence: JP)
  Receive Date: 20120921
  Receipt Date: 20120921
  Transmission Date: 20130627
  Serious: Yes (Hospitalization)
  Sender: FDA-Public Use
  Company Number: JP-ROCHE-718094

PATIENT
  Age: 9 Year
  Sex: Male
  Weight: 14 kg

DRUGS (22)
  1. ACTEMRA [Suspect]
     Indication: JUVENILE ARTHRITIS
     Route: 041
     Dates: start: 20090217, end: 20090224
  2. ACTEMRA [Suspect]
     Route: 041
     Dates: start: 20090311, end: 20090319
  3. ACTEMRA [Suspect]
     Route: 041
     Dates: start: 20090401, end: 20090415
  4. ACTEMRA [Suspect]
     Route: 041
     Dates: start: 20090428, end: 20090505
  5. ACTEMRA [Suspect]
     Route: 041
     Dates: start: 20090519, end: 20091031
  6. ACTEMRA [Suspect]
     Route: 041
     Dates: start: 20091114, end: 20091215
  7. ACTEMRA [Suspect]
     Route: 041
     Dates: start: 20091229, end: 20100119
  8. ACTEMRA [Suspect]
     Route: 041
     Dates: start: 20100202, end: 20100218
  9. ACTEMRA [Suspect]
     Route: 041
     Dates: start: 20100227, end: 20100227
  10. PREDNISOLONE [Suspect]
     Indication: JUVENILE ARTHRITIS
     Dosage: FORM: PERORAL AGENT.
     Route: 048
  11. PREDNISOLONE [Suspect]
     Route: 048
     Dates: start: 20090224, end: 20090415
  12. PREDNISOLONE [Suspect]
     Route: 048
     Dates: start: 20090416, end: 20090627
  13. PREDNISOLONE [Suspect]
     Route: 048
  14. PROGRAF [Concomitant]
     Dosage: FORM: PERORAL AGENT.
     Route: 048
  15. RHEUMATREX [Concomitant]
     Dosage: FORM: PERORAL AGENT.
     Route: 048
  16. RHEUMATREX [Concomitant]
     Route: 048
  17. RHEUMATREX [Concomitant]
     Dosage: FORM: PERORAL AGENT
     Route: 048
  18. FOLIAMIN [Concomitant]
     Dosage: FORM: PERORAL AGENT.
     Route: 048
  19. SELBEX [Concomitant]
     Dosage: FORM: PERORAL AGENT.
     Route: 048
  20. SULFAMETHOXAZOLE/TRIMETHOPRIM [Concomitant]
     Route: 048
  21. BONALON [Concomitant]
     Dosage: DRUG REPORTED: BONALON 35MG(ALENDRONATE SODIUM HYDRATE)
     Route: 048
  22. BONALON [Concomitant]
     Route: 048

REACTIONS (2)
  - Interstitial lung disease [Recovering/Resolving]
  - Chest pain [Recovering/Resolving]
